FAERS Safety Report 10720042 (Version 1)
Quarter: 2015Q1

REPORT INFORMATION
  Report Type: Spontaneous
  Country: FR (occurrence: FR)
  Receive Date: 20150119
  Receipt Date: 20150119
  Transmission Date: 20150721
  Serious: Yes (Hospitalization)
  Sender: FDA-Public Use
  Company Number: FR-AUROBINDO-AUR-APL-2015-00385

PATIENT
  Age: 68 Year
  Sex: Male

DRUGS (2)
  1. CIPROFLOXACIN ARROW FILM-COATED TABLET [Suspect]
     Active Substance: CIPROFLOXACIN
     Indication: URINARY TRACT INFECTION
     Dosage: 500 MG, ONCE A DAY
     Route: 048
     Dates: start: 20141101, end: 20141101
  2. PIPERACILLIN AND TAZOBACTAM [Suspect]
     Active Substance: PIPERACILLIN SODIUM\TAZOBACTAM SODIUM
     Indication: URINARY TRACT INFECTION
     Dosage: 4 G, TWO TIMES A DAY
     Route: 042
     Dates: start: 20141031, end: 20141102

REACTIONS (3)
  - Rash erythematous [Unknown]
  - Rash maculo-papular [Unknown]
  - Rash [Unknown]

NARRATIVE: CASE EVENT DATE: 20141101
